FAERS Safety Report 4548061-3 (Version None)
Quarter: 2005Q1

REPORT INFORMATION
  Report Type: 
  Country: None (occurrence: None)
  Receive Date: 20050110
  Receipt Date: 20041115
  Transmission Date: 20050727
  Serious: Yes (Hospitalization)
  Sender: FDA-Public Use
  Company Number: 200413554JP

PATIENT
  Age: 52 Year
  Sex: Male

DRUGS (4)
  1. ALLEGRA [Suspect]
     Indication: HYPERSENSITIVITY
     Dosage: DOSE: 1 TABLET
     Route: 048
     Dates: start: 20030322, end: 20030505
  2. RIZALAST [Concomitant]
     Indication: HYPERSENSITIVITY
     Route: 048
     Dates: start: 20030322, end: 20030505
  3. HISTAGLOBIN [Concomitant]
     Indication: HYPERSENSITIVITY
     Dosage: DOSE: 1 VIAL
     Route: 030
     Dates: start: 20030322, end: 20030502
  4. ROSEMORGEN [Concomitant]
     Indication: HYPERSENSITIVITY
     Dosage: DOSE: 1 TUBE
     Route: 030
     Dates: start: 20030322, end: 20030502

REACTIONS (6)
  - ANOREXIA [None]
  - GALLBLADDER ENLARGEMENT [None]
  - HEPATOMEGALY [None]
  - JAUNDICE [None]
  - LIVER DISORDER [None]
  - PRURITUS [None]
